FAERS Safety Report 12712579 (Version 1)
Quarter: 2016Q3

REPORT INFORMATION
  Report Type: Spontaneous
  Country: US (occurrence: US)
  Receive Date: 20160902
  Receipt Date: 20160902
  Transmission Date: 20161109
  Serious: Yes (Disabling)
  Sender: FDA-Public Use
  Company Number: US-JNJFOC-20160827406

PATIENT
  Age: 52 Year
  Sex: Male
  Weight: 83.01 kg

DRUGS (12)
  1. OMEPRAZOLE. [Concomitant]
     Active Substance: OMEPRAZOLE
     Route: 065
  2. CARVEDILOL. [Concomitant]
     Active Substance: CARVEDILOL
     Route: 065
  3. JANUMET [Concomitant]
     Active Substance: METFORMIN HYDROCHLORIDE\SITAGLIPTIN PHOSPHATE
     Dosage: DOSE: 50/1000 MG
     Route: 065
  4. ZOLPIDEM [Concomitant]
     Active Substance: ZOLPIDEM\ZOLPIDEM TARTRATE
     Route: 065
  5. GLIPIZIDE. [Concomitant]
     Active Substance: GLIPIZIDE
     Route: 065
  6. LYRICA [Concomitant]
     Active Substance: PREGABALIN
     Dosage: DOSE: 50 (UNITS UNSPECIFIED)
     Route: 065
  7. TIZANIDINE. [Concomitant]
     Active Substance: TIZANIDINE
     Route: 065
  8. INVOKANA [Suspect]
     Active Substance: CANAGLIFLOZIN
     Indication: DIABETES MELLITUS
     Route: 048
     Dates: start: 20150205, end: 20160602
  9. ATORVASTATIN [Concomitant]
     Active Substance: ATORVASTATIN
     Route: 065
  10. BENAZEPRIL HYDROCHLORIDE AND HYDROCHLOROTHIAZIDE [Concomitant]
     Active Substance: BENAZEPRIL HYDROCHLORIDE\HYDROCHLOROTHIAZIDE
     Dosage: DOSE: 10-12.5 (UNITS UNSPECIFIED)
     Route: 065
  11. AMLODIPINE [Concomitant]
     Active Substance: AMLODIPINE BESYLATE
     Route: 065
  12. CELECOXIB. [Concomitant]
     Active Substance: CELECOXIB
     Route: 065

REACTIONS (3)
  - Limb discomfort [Recovered/Resolved]
  - Muscle spasms [Recovered/Resolved]
  - Pain in extremity [Recovered/Resolved]

NARRATIVE: CASE EVENT DATE: 20160101
